FAERS Safety Report 9979372 (Version 2)
Quarter: 2014Q1

REPORT INFORMATION
  Report Type: Report from Study
  Country: US (occurrence: US)
  Receive Date: 20140306
  Receipt Date: 20140306
  Transmission Date: 20141002
  Serious: Yes (Other)
  Sender: FDA-Public Use
  Company Number: US-ABBVIE-13P-163-1172845-00

PATIENT
  Age: 45 Year
  Sex: Male

DRUGS (11)
  1. HUMIRA [Suspect]
     Indication: CROHN^S DISEASE
     Dates: start: 201208, end: 20130905
  2. MERCAPTOPURINE [Concomitant]
     Indication: CROHN^S DISEASE
  3. ALLOPURINOL [Concomitant]
     Indication: CROHN^S DISEASE
  4. VITAMIN D3 [Concomitant]
     Indication: PRODUCT USED FOR UNKNOWN INDICATION
  5. VITAMIN B12 [Concomitant]
     Indication: PRODUCT USED FOR UNKNOWN INDICATION
  6. IRON [Concomitant]
     Indication: PRODUCT USED FOR UNKNOWN INDICATION
     Dosage: 325MG DAILY
  7. MAGNESIUM GLUCONATE [Concomitant]
     Indication: PRODUCT USED FOR UNKNOWN INDICATION
     Dosage: 1-2 DAILY
  8. SIMVASTATIN [Concomitant]
     Indication: BLOOD CHOLESTEROL INCREASED
  9. POTASSIUM/SODIUM/PHOSPHATE [Concomitant]
     Indication: PRODUCT USED FOR UNKNOWN INDICATION
     Dosage: 280/160/250MG 1 PKT DAILY
  10. TESTOSTERONE [Concomitant]
     Indication: BLOOD TESTOSTERONE DECREASED
  11. DIOVAN [Concomitant]
     Indication: HYPERTENSION

REACTIONS (2)
  - Squamous cell carcinoma of the tongue [Not Recovered/Not Resolved]
  - Glossodynia [Unknown]
